FAERS Safety Report 8827782 (Version 2)
Quarter: 2013Q1

REPORT INFORMATION
  Report Type: Spontaneous
  Country: US (occurrence: US)
  Receive Date: 20121008
  Receipt Date: 20130109
  Transmission Date: 20140127
  Serious: No
  Sender: FDA-Public Use
  Company Number: US-PFIZER INC-2012246135

PATIENT
  Sex: Female

DRUGS (4)
  1. RELPAX [Suspect]
     Dosage: UNK
  2. PREMARIN [Suspect]
     Dosage: UNK
  3. PREMPRO [Suspect]
     Dosage: UNK
  4. ZOLOFT [Suspect]
     Dosage: UNK

REACTIONS (3)
  - Migraine [Unknown]
  - Vomiting [Unknown]
  - Nausea [Unknown]
